FAERS Safety Report 8848677 (Version 2)
Quarter: 2013Q1

REPORT INFORMATION
  Report Type: Spontaneous
  Country: AT (occurrence: None)
  Receive Date: 20121015
  Receipt Date: 20130227
  Transmission Date: 20140127
  Serious: Yes (Hospitalization)
  Sender: FDA-Public Use
  Company Number: INT_00130_2012

PATIENT
  Age: 56 Year
  Sex: Female

DRUGS (7)
  1. MEROPENEM [Suspect]
     Indication: NEUTROPENIC SEPSIS
     Dosage: 1 G 1X/8 HOURS INTRAVENPUS (NOT OTHERWISDE SPECIFIED)
     Route: 042
  2. VALPROATE [Suspect]
     Indication: EPILEPSY
  3. VALPROATE [Suspect]
     Indication: CONVULSION PROPHYLAXIS
  4. TOPIRAMATE [Suspect]
     Indication: EPILEPSY
  5. TOPIRAMATE [Suspect]
     Indication: CONVULSION PROPHYLAXIS
  6. CEFTRIAXONE [Concomitant]
  7. METRONIDAZOLE [Concomitant]

REACTIONS (8)
  - Hypotension [None]
  - Pyrexia [None]
  - Neutropenia [None]
  - Decubitus ulcer [None]
  - Altered state of consciousness [None]
  - Grand mal convulsion [None]
  - Drug interaction [None]
  - Staphylococcus test positive [None]
